FAERS Safety Report 16739238 (Version 1)
Quarter: 2019Q3

REPORT INFORMATION
  Report Type: Spontaneous
  Country: US (occurrence: US)
  Receive Date: 20190826
  Receipt Date: 20190826
  Transmission Date: 20191005
  Serious: No
  Sender: FDA-Public Use
  Company Number: US-OREXO US, INC.-ORE201901-000019

PATIENT
  Sex: Female

DRUGS (3)
  1. ZUBSOLV [Suspect]
     Active Substance: BUPRENORPHINE HYDROCHLORIDE\NALOXONE HYDROCHLORIDE
     Indication: PAIN
     Route: 060
     Dates: start: 20190115
  2. FLEXERIL [Concomitant]
     Active Substance: CYCLOBENZAPRINE HYDROCHLORIDE
     Dosage: 10 MG; 3 TIMES A DAY
  3. KLONOPIN [Concomitant]
     Active Substance: CLONAZEPAM
     Dosage: 1MG; 3 TIMES A DAY

REACTIONS (7)
  - Dizziness [Unknown]
  - Drug ineffective for unapproved indication [Unknown]
  - Burning sensation [Unknown]
  - Somnolence [Unknown]
  - Nausea [Unknown]
  - Condition aggravated [Unknown]
  - Feeling jittery [Unknown]
